FAERS Safety Report 4412114-0 (Version None)
Quarter: 2004Q3

REPORT INFORMATION
  Report Type: 
  Country: None (occurrence: None)
  Receive Date: 20040729
  Receipt Date: 20040729
  Transmission Date: 20050211
  Serious: Yes (Life-Threatening)
  Sender: FDA-Public Use
  Company Number: None

PATIENT
  Age: 77 Year
  Sex: Female
  Weight: 64.8 kg

DRUGS (15)
  1. PANGLOBULIN [Suspect]
     Indication: DEMYELINATION
     Dosage: 30 G DAILY IV
     Route: 042
     Dates: start: 20040716, end: 20040720
  2. LORATADINE [Concomitant]
  3. KCL TAB [Concomitant]
  4. LANSOPRAXOLE [Concomitant]
  5. INSULIN NPH/REG [Concomitant]
  6. FUROSEMIDE [Concomitant]
  7. IRBESARTAN [Concomitant]
  8. SERTRALINE HCL [Concomitant]
  9. SIMVASTATIN [Concomitant]
  10. METOPROLOL TARTRATE [Concomitant]
  11. ASPIRIN [Concomitant]
  12. PHYCONADIONE [Concomitant]
  13. WARFARIN SODIUM [Concomitant]
  14. ONDANSETRON [Concomitant]
  15. HEPARIN [Concomitant]

REACTIONS (1)
  - RENAL FAILURE ACUTE [None]
